FAERS Safety Report 23075150 (Version 3)
Quarter: 2024Q4

REPORT INFORMATION
  Report Type: Spontaneous
  Country: US (occurrence: US)
  Receive Date: 20231017
  Receipt Date: 20241216
  Transmission Date: 20250114
  Serious: Yes (Other)
  Sender: BAYER HEALTHCARE PHARMACEUTICALS INC.
  Company Number: US-BAYER-2023A139951

PATIENT
  Age: 25 Year
  Sex: Female

DRUGS (3)
  1. SKYLA [Suspect]
     Active Substance: LEVONORGESTREL
     Indication: Contraception
     Dosage: 14?G/DAY
     Route: 015
     Dates: start: 202309
  2. DUPIXENT [Concomitant]
     Active Substance: DUPILUMAB
  3. TRIAMCINOLONE [Concomitant]
     Active Substance: TRIAMCINOLONE

REACTIONS (3)
  - Eye infection [None]
  - Dry eye [None]
  - Condition aggravated [None]

NARRATIVE: CASE EVENT DATE: 20241001
